FAERS Safety Report 13276389 (Version 1)
Quarter: 2017Q1

REPORT INFORMATION
  Report Type: Report from Study
  Country: FR (occurrence: FR)
  Receive Date: 20170228
  Receipt Date: 20170228
  Transmission Date: 20170428
  Serious: Yes (Hospitalization, Other)
  Sender: FDA-Public Use
  Company Number: PHHY2016FR069300

PATIENT
  Age: 59 Year
  Sex: Female

DRUGS (34)
  1. CERTICAN [Suspect]
     Active Substance: EVEROLIMUS
     Dosage: 2 MG, QD
     Route: 048
     Dates: start: 20140330, end: 20140403
  2. PROGRAF [Concomitant]
     Active Substance: TACROLIMUS\TACROLIMUS ANHYDROUS
     Indication: IMMUNOSUPPRESSANT DRUG THERAPY
     Dosage: 4 MG, QD
     Route: 065
     Dates: start: 20150211, end: 20150218
  3. PROGRAF [Concomitant]
     Active Substance: TACROLIMUS\TACROLIMUS ANHYDROUS
     Dosage: 1 MG, QD
     Route: 048
     Dates: start: 20150219, end: 20150316
  4. LEVEMIR [Concomitant]
     Active Substance: INSULIN DETEMIR
     Indication: PRODUCT USED FOR UNKNOWN INDICATION
     Dosage: 18 UI, QD
     Route: 065
  5. MYFORTIC [Suspect]
     Active Substance: MYCOPHENOLATE SODIUM
     Indication: LIVER TRANSPLANT
     Dosage: 1440 MG, QD
     Route: 065
     Dates: start: 20130406, end: 20140315
  6. CERTICAN [Suspect]
     Active Substance: EVEROLIMUS
     Indication: LIVER TRANSPLANT
     Dosage: 7 MG, QD
     Route: 048
     Dates: start: 20130629, end: 20131217
  7. CERTICAN [Suspect]
     Active Substance: EVEROLIMUS
     Dosage: 3.5 MG, QD
     Route: 048
     Dates: start: 20160104, end: 20160321
  8. MYFORTIC [Suspect]
     Active Substance: MYCOPHENOLATE SODIUM
     Indication: IMMUNOSUPPRESSANT DRUG THERAPY
     Dosage: 360 MG, BID
     Route: 065
     Dates: start: 20140411
  9. CORTANCYL [Concomitant]
     Active Substance: PREDNISONE
     Dosage: 1 MG, QD
     Route: 065
     Dates: start: 20131019, end: 20131119
  10. CERTICAN [Suspect]
     Active Substance: EVEROLIMUS
     Indication: PROPHYLAXIS AGAINST TRANSPLANT REJECTION
     Dosage: 6 MG, QD
     Route: 048
     Dates: start: 20131218, end: 20140205
  11. CERTICAN [Suspect]
     Active Substance: EVEROLIMUS
     Dosage: 2.5 MG, QD
     Route: 048
     Dates: start: 20140329, end: 20140329
  12. CERTICAN [Suspect]
     Active Substance: EVEROLIMUS
     Dosage: 2.5 MG, QD
     Route: 048
     Dates: start: 20140404, end: 20140512
  13. CERTICAN [Suspect]
     Active Substance: EVEROLIMUS
     Dosage: 2.5 MG, QD
     Route: 048
     Dates: start: 20160517
  14. PROGRAF [Concomitant]
     Active Substance: TACROLIMUS\TACROLIMUS ANHYDROUS
     Dosage: 2 MG, QD
     Route: 048
     Dates: start: 20150317, end: 20150526
  15. MOVICOL [Concomitant]
     Active Substance: POLYETHYLENE GLYCOL 3350\POTASSIUM CHLORIDE\SODIUM BICARBONATE\SODIUM CHLORIDE
     Indication: PRODUCT USED FOR UNKNOWN INDICATION
     Dosage: UNK UNK, PRN
     Route: 065
  16. CERTICAN [Suspect]
     Active Substance: EVEROLIMUS
     Dosage: 2.5 MG, QD
     Route: 048
     Dates: start: 20140321, end: 20140321
  17. CERTICAN [Suspect]
     Active Substance: EVEROLIMUS
     Dosage: 4 MG, QD
     Route: 048
     Dates: start: 20140627, end: 20150203
  18. CERTICAN [Suspect]
     Active Substance: EVEROLIMUS
     Dosage: 2 MG, QD
     Route: 048
     Dates: start: 20150917, end: 20151221
  19. PROGRAF [Concomitant]
     Active Substance: TACROLIMUS\TACROLIMUS ANHYDROUS
     Dosage: 1 MG, QD
     Dates: start: 20151202, end: 20151222
  20. OMEPRAZOLE. [Concomitant]
     Active Substance: OMEPRAZOLE
     Indication: PRODUCT USED FOR UNKNOWN INDICATION
     Dosage: 20 MG, QD
     Route: 065
  21. CERTICAN [Suspect]
     Active Substance: EVEROLIMUS
     Indication: IMMUNOSUPPRESSANT DRUG THERAPY
     Dosage: 5 MG, QD
     Route: 048
     Dates: start: 20140206, end: 20140320
  22. CERTICAN [Suspect]
     Active Substance: EVEROLIMUS
     Dosage: 2 MG, QD
     Route: 048
     Dates: start: 20150204, end: 20150210
  23. CERTICAN [Suspect]
     Active Substance: EVEROLIMUS
     Dosage: 2.5 MG, QD
     Route: 048
     Dates: start: 20151222, end: 20160103
  24. PROGRAF [Concomitant]
     Active Substance: TACROLIMUS\TACROLIMUS ANHYDROUS
     Dosage: 3 MG, QD
     Route: 048
     Dates: start: 20150527, end: 20150916
  25. KARDEGIC [Concomitant]
     Active Substance: ASPIRIN LYSINE
     Indication: PRODUCT USED FOR UNKNOWN INDICATION
     Dosage: 75 MG, QD
     Route: 065
  26. CERTICAN [Suspect]
     Active Substance: EVEROLIMUS
     Dosage: 3 MG, QD
     Route: 048
     Dates: start: 20140513, end: 20140626
  27. CERTICAN [Suspect]
     Active Substance: EVEROLIMUS
     Dosage: 3 MG, QD
     Route: 048
     Dates: start: 20160322, end: 20160516
  28. CRESTOR [Concomitant]
     Active Substance: ROSUVASTATIN CALCIUM
     Indication: PRODUCT USED FOR UNKNOWN INDICATION
     Dosage: 20 MG, QD
     Route: 065
  29. CERTICAN [Suspect]
     Active Substance: EVEROLIMUS
     Dosage: 2.5 MG, QD
     Route: 048
     Dates: start: 20140323, end: 20140323
  30. CERTICAN [Suspect]
     Active Substance: EVEROLIMUS
     Dosage: 3 MG, QD
     Route: 048
     Dates: start: 20140324, end: 20140328
  31. CERTICAN [Suspect]
     Active Substance: EVEROLIMUS
     Dosage: 2.5 MG, QD (1.5 MG IN MORNING AND 1 MG IN THE EVENING)
     Route: 065
  32. CORTANCYL [Concomitant]
     Active Substance: PREDNISONE
     Indication: IMMUNOSUPPRESSANT DRUG THERAPY
     Dosage: 2 MG, QD
     Route: 065
     Dates: start: 20130920, end: 20131018
  33. PROGRAF [Concomitant]
     Active Substance: TACROLIMUS\TACROLIMUS ANHYDROUS
     Dosage: 2 MG, QD
     Route: 065
     Dates: start: 20150204, end: 20150210
  34. PROGRAF [Concomitant]
     Active Substance: TACROLIMUS\TACROLIMUS ANHYDROUS
     Dosage: 2 MG, QD
     Route: 048
     Dates: start: 20150917, end: 20151201

REACTIONS (11)
  - Anastomotic stenosis [Unknown]
  - Arthralgia [Not Recovered/Not Resolved]
  - Abdominal pain upper [Unknown]
  - Rectal haemorrhage [Recovered/Resolved]
  - Haematochezia [Unknown]
  - Gamma-glutamyltransferase increased [Unknown]
  - Chest pain [Recovered/Resolved]
  - Abdominal pain [Not Recovered/Not Resolved]
  - Urinary tract infection [Unknown]
  - Mucous stools [Unknown]
  - Back pain [Not Recovered/Not Resolved]

NARRATIVE: CASE EVENT DATE: 201509
